FAERS Safety Report 10803728 (Version 1)
Quarter: 2015Q1

REPORT INFORMATION
  Report Type: Spontaneous
  Country: US (occurrence: US)
  Receive Date: 20150217
  Receipt Date: 20150217
  Transmission Date: 20150721
  Serious: Yes (Hospitalization, Other)
  Sender: FDA-Public Use
  Company Number: US-TEVA-540951USA

PATIENT
  Age: 49 Year
  Sex: Female

DRUGS (2)
  1. DULOXETINE [Suspect]
     Active Substance: DULOXETINE
     Indication: PAIN MANAGEMENT
     Route: 048
     Dates: start: 201409, end: 201412
  2. DULOXETINE [Suspect]
     Active Substance: DULOXETINE
     Route: 048
     Dates: start: 201408, end: 201409

REACTIONS (24)
  - Bowel movement irregularity [Unknown]
  - Nausea [Unknown]
  - Fall [Unknown]
  - Insomnia [Unknown]
  - Anxiety [Unknown]
  - Suicidal ideation [Unknown]
  - Vertigo [Unknown]
  - Aggression [Unknown]
  - Urinary tract infection [Unknown]
  - Rash [Unknown]
  - Paraesthesia [Unknown]
  - Hypokinesia [Unknown]
  - Crohn^s disease [Unknown]
  - Agitation [Unknown]
  - Aphasia [Unknown]
  - Plantar fasciitis [Unknown]
  - Tooth fracture [Unknown]
  - Post-traumatic stress disorder [Unknown]
  - Gastric disorder [Unknown]
  - Dizziness [Unknown]
  - Memory impairment [Unknown]
  - Back pain [Unknown]
  - Constipation [Unknown]
  - Crying [Unknown]

NARRATIVE: CASE EVENT DATE: 201410
